FAERS Safety Report 10783942 (Version 2)
Quarter: 2015Q3

REPORT INFORMATION
  Report Type: Spontaneous
  Country: IN (occurrence: IN)
  Receive Date: 20150210
  Receipt Date: 20150826
  Transmission Date: 20151125
  Serious: Yes (Other)
  Sender: FDA-Public Use
  Company Number: IN-AUROBINDO-AUR-APL-2015-01044

PATIENT
  Age: 16 Year
  Sex: Male

DRUGS (3)
  1. ZIDOVUDINE TABLET [Suspect]
     Active Substance: ZIDOVUDINE
     Indication: ANTIRETROVIRAL THERAPY
     Dosage: 250 MG, TWO TIMES A DAY
     Route: 065
  2. ABACAVIR TABLETS [Suspect]
     Active Substance: ABACAVIR
     Indication: PRODUCT USED FOR UNKNOWN INDICATION
     Dosage: 300 MG, UNK
     Route: 065
  3. EFAVIRENZ TABLETS [Suspect]
     Active Substance: EFAVIRENZ
     Indication: ANTIRETROVIRAL THERAPY
     Dosage: 300 MG, UNK
     Route: 065

REACTIONS (9)
  - Catatonia [Recovered/Resolved]
  - Drug withdrawal syndrome [Recovered/Resolved]
  - Agitation [Recovered/Resolved]
  - Echopraxia [Recovered/Resolved]
  - Grimacing [Recovered/Resolved]
  - Posturing [Recovered/Resolved]
  - Poor quality sleep [Recovered/Resolved]
  - Negativism [Recovered/Resolved]
  - Mutism [Recovered/Resolved]
